FAERS Safety Report 25607155 (Version 1)
Quarter: 2025Q3

REPORT INFORMATION
  Report Type: Report from Study
  Country: MX (occurrence: MX)
  Receive Date: 20250725
  Receipt Date: 20250725
  Transmission Date: 20251020
  Serious: Yes (Other)
  Sender: ELI LILLY AND COMPANY
  Company Number: MX-Merck Healthcare KGaA-2025036107

PATIENT
  Age: 69 Year
  Sex: Male

DRUGS (4)
  1. CETUXIMAB [Suspect]
     Active Substance: CETUXIMAB
     Indication: Colorectal cancer
     Dosage: 750 MG, 2/W
     Route: 042
     Dates: start: 20250512, end: 202506
  2. LOPERAMIDE [Concomitant]
     Active Substance: LOPERAMIDE
     Indication: Colostomy
     Dosage: 2 MG, UNK
  3. TAMSULOSIN [Concomitant]
     Active Substance: TAMSULOSIN
     Indication: Prostatic disorder
  4. FINASTERIDE [Concomitant]
     Active Substance: FINASTERIDE
     Indication: Prostatic disorder

REACTIONS (1)
  - Neuropathy peripheral [Not Recovered/Not Resolved]
